FAERS Safety Report 17336571 (Version 1)
Quarter: 2020Q1

REPORT INFORMATION
  Report Type: Spontaneous
  Country: US (occurrence: US)
  Receive Date: 20200128
  Receipt Date: 20200128
  Transmission Date: 20200409
  Serious: Yes (Hospitalization)
  Sender: FDA-Public Use
  Company Number: US-VERTEX PHARMACEUTICALS-2020-001412

PATIENT
  Age: 42 Year
  Sex: Male

DRUGS (15)
  1. QUETIAPINE FUMARATE. [Concomitant]
     Active Substance: QUETIAPINE FUMARATE
  2. ACETAMINOPHEN. [Concomitant]
     Active Substance: ACETAMINOPHEN
  3. SODIUM CHLORIDE. [Concomitant]
     Active Substance: SODIUM CHLORIDE
  4. PULMOZYME [Concomitant]
     Active Substance: DORNASE ALFA
  5. FERROUS SULFATE. [Concomitant]
     Active Substance: FERROUS SULFATE
  6. GUAIFENESIN. [Concomitant]
     Active Substance: GUAIFENESIN
  7. DUONEB [Concomitant]
     Active Substance: ALBUTEROL SULFATE\IPRATROPIUM BROMIDE
  8. COLISTIMETHATE [Concomitant]
     Active Substance: COLISTIMETHATE SODIUM
  9. TOBRAMYCIN. [Concomitant]
     Active Substance: TOBRAMYCIN
  10. VENTOLINE [SALBUTAMOL] [Concomitant]
     Active Substance: ALBUTEROL SULFATE
  11. BUDESONIDE. [Concomitant]
     Active Substance: BUDESONIDE
  12. PREDNISONE. [Concomitant]
     Active Substance: PREDNISONE
  13. ZENPEP [Concomitant]
     Active Substance: PANCRELIPASE AMYLASE\PANCRELIPASE LIPASE\PANCRELIPASE PROTEASE
  14. IBUPROFEN. [Concomitant]
     Active Substance: IBUPROFEN
  15. TRIKAFTA [Suspect]
     Active Substance: ELEXACAFTOR\IVACAFTOR\TEZACAFTOR
     Indication: CYSTIC FIBROSIS
     Dosage: 2 TABS IN MORNING AND 1 TAB IN EVENING WITH FAT CONTAINING MEALS
     Route: 048
     Dates: start: 201912

REACTIONS (1)
  - Lung transplant [Unknown]

NARRATIVE: CASE EVENT DATE: 20200115
